FAERS Safety Report 23090973 (Version 1)
Quarter: 2023Q4

REPORT INFORMATION
  Report Type: Spontaneous
  Country: US (occurrence: US)
  Receive Date: 20231020
  Receipt Date: 20231020
  Transmission Date: 20240110
  Serious: No
  Sender: FDA-Public Use
  Company Number: US-SA-SAC20231016001011

PATIENT
  Age: 65 Year
  Sex: Male

DRUGS (3)
  1. DUPIXENT [Suspect]
     Active Substance: DUPILUMAB
     Indication: Eczema
     Dosage: 600 MG, 1X
     Route: 058
     Dates: start: 20230630, end: 20230630
  2. DUPIXENT [Suspect]
     Active Substance: DUPILUMAB
     Dosage: 300 MG, QOW
     Route: 058
     Dates: start: 2023
  3. OPZELURA [Concomitant]
     Active Substance: RUXOLITINIB PHOSPHATE
     Dosage: UNK
     Dates: start: 20230905

REACTIONS (6)
  - Oesophageal disorder [Unknown]
  - Migraine [Not Recovered/Not Resolved]
  - Eczema [Not Recovered/Not Resolved]
  - Rash [Unknown]
  - Pruritus [Not Recovered/Not Resolved]
  - Inappropriate schedule of product administration [Unknown]

NARRATIVE: CASE EVENT DATE: 20230101
